FAERS Safety Report 12602494 (Version 1)
Quarter: 2016Q3

REPORT INFORMATION
  Report Type: Spontaneous
  Country: US (occurrence: None)
  Receive Date: 20160727
  Receipt Date: 20160727
  Transmission Date: 20161109
  Serious: Yes (Hospitalization)
  Sender: FDA-Public Use
  Company Number: None

PATIENT
  Age: 60 Year
  Sex: Female
  Weight: 71.53 kg

DRUGS (7)
  1. NIVOLUMAB [Suspect]
     Active Substance: NIVOLUMAB
     Indication: METASTATIC UTERINE CANCER
     Dosage: 3MG/KG
     Route: 042
     Dates: start: 20160629
  2. MULTIVITAMIN [Concomitant]
     Active Substance: VITAMINS
  3. HICARDIS [Concomitant]
  4. INTERFERON [Suspect]
     Active Substance: INTERFERON
     Indication: METASTATIC UTERINE CANCER
     Route: 058
     Dates: start: 20160621
  5. ADVIL [Concomitant]
     Active Substance: IBUPROFEN
  6. XANAX [Concomitant]
     Active Substance: ALPRAZOLAM
  7. SYNTHROID [Concomitant]
     Active Substance: LEVOTHYROXINE SODIUM

REACTIONS (2)
  - Body temperature increased [None]
  - Pleural effusion [None]

NARRATIVE: CASE EVENT DATE: 20160713
